APPROVED DRUG PRODUCT: DILTIAZEM HYDROCHLORIDE
Active Ingredient: DILTIAZEM HYDROCHLORIDE
Strength: 60MG
Dosage Form/Route: TABLET;ORAL
Application: A216521 | Product #002 | TE Code: AB
Applicant: SCIEGEN PHARMACEUTICALS INC
Approved: Sep 23, 2022 | RLD: No | RS: No | Type: RX